FAERS Safety Report 6018312-7 (Version None)
Quarter: 2008Q4

REPORT INFORMATION
  Report Type: 
  Country: None (occurrence: None)
  Receive Date: 20081223
  Receipt Date: 20081212
  Transmission Date: 20090506
  Serious: Yes (Hospitalization, Other)
  Sender: FDA-Public Use
  Company Number: US-ROCHE-562393

PATIENT
  Sex: Female

DRUGS (10)
  1. VALIUM [Suspect]
     Indication: SARCOIDOSIS
     Route: 048
     Dates: start: 19930101
  2. VALIUM [Suspect]
     Dosage: THERAPY RESTARTED AT Q 6 PRN
     Route: 048
  3. ADVAIR DISKUS 250/50 [Suspect]
     Indication: DRUG USE FOR UNKNOWN INDICATION
     Route: 065
  4. MAXAIR [Suspect]
     Indication: DRUG USE FOR UNKNOWN INDICATION
     Route: 065
  5. ALBUTEROL [Suspect]
     Indication: DRUG USE FOR UNKNOWN INDICATION
     Route: 065
  6. STEROID NOS [Suspect]
     Indication: DRUG USE FOR UNKNOWN INDICATION
     Route: 065
  7. PREDNISONE TAB [Suspect]
     Indication: DRUG USE FOR UNKNOWN INDICATION
     Route: 065
  8. LIPITOR [Concomitant]
  9. SINGULAIR [Concomitant]
  10. EPIPEN [Concomitant]

REACTIONS (7)
  - COUGH [None]
  - INSOMNIA [None]
  - JOINT STIFFNESS [None]
  - NAUSEA [None]
  - SARCOIDOSIS [None]
  - SINUS OPERATION [None]
  - TREMOR [None]
